FAERS Safety Report 5205473-2 (Version None)
Quarter: 2006Q4

REPORT INFORMATION
  Report Type: 
  Country: None (occurrence: None)
  Receive Date: 20061027
  Receipt Date: 20051006
  Transmission Date: 20070319
  Serious: Yes (Other)
  Sender: FDA-Public Use
  Company Number: HQWYE972312OCT05

PATIENT
  Age: 64 Year
  Sex: Female
  Weight: 64.47 kg

DRUGS (3)
  1. PREMARIN [Suspect]
     Indication: HYSTERECTOMY
     Dosage: SEE IMAGE
     Route: 048
  2. PREMARIN [Suspect]
     Indication: HYSTERECTOMY
     Dosage: SEE IMAGE
     Route: 048
     Dates: start: 19910801
  3. LEVOTHROID [Concomitant]

REACTIONS (2)
  - DRUG INEFFECTIVE [None]
  - EXTRASYSTOLES [None]
